FAERS Safety Report 23694822 (Version 1)
Quarter: 2024Q2

REPORT INFORMATION
  Report Type: Report from Study
  Country: FI (occurrence: None)
  Receive Date: 20240402
  Receipt Date: 20240402
  Transmission Date: 20240716
  Serious: Yes (Other)
  Sender: FDA-Public Use
  Company Number: FI-Encube-000653

PATIENT

DRUGS (4)
  1. METRONIDAZOLE [Suspect]
     Active Substance: METRONIDAZOLE
     Indication: Antibiotic prophylaxis
     Dosage: TOOK BEFORE SURGERY AT 3 PM AND 11 PM
     Route: 048
  2. NEOMYCIN [Suspect]
     Active Substance: NEOMYCIN
     Indication: Antibiotic prophylaxis
     Dosage: TOOK AT 3 PM AND 11 PM ON THE DAY BEFORE SURGERY
     Route: 048
  3. CEFUROXIME [Concomitant]
     Active Substance: CEFUROXIME
     Indication: Antibiotic prophylaxis
     Dosage: TOOK  APPROXIMATELY 30 MINUTES BEFORE SURGERY
  4. METRONIDAZOLE [Suspect]
     Active Substance: METRONIDAZOLE
     Indication: Antibiotic prophylaxis
     Dosage: TOOK APPROXIMATELY 30 MINUTES BEFORE SURGERY

REACTIONS (2)
  - Clostridium difficile infection [Unknown]
  - Off label use [Unknown]
